FAERS Safety Report 25880722 (Version 2)
Quarter: 2025Q4

REPORT INFORMATION
  Report Type: Spontaneous
  Country: US (occurrence: US)
  Receive Date: 20251004
  Receipt Date: 20251201
  Transmission Date: 20260117
  Serious: No
  Sender: ACCORD
  Company Number: US-Coherus Biosciences, Inc.-2024-COH-US000297

PATIENT
  Age: 71 Year
  Sex: Female

DRUGS (6)
  1. UDENYCA [Suspect]
     Active Substance: PEGFILGRASTIM-CBQV
     Indication: Prophylaxis
     Dosage: 6 MG/0.6 ML
     Route: 058
  2. VINCRISTINE [Concomitant]
     Active Substance: VINCRISTINE
  3. CYTOXAN [Concomitant]
     Active Substance: CYCLOPHOSPHAMIDE
  4. UDENYCA [Suspect]
     Active Substance: PEGFILGRASTIM-CBQV
     Indication: Prophylaxis
     Dosage: 6 MG/0.6 ML
     Route: 058
     Dates: start: 20240314, end: 20240314
  5. UDENYCA [Suspect]
     Active Substance: PEGFILGRASTIM-CBQV
     Indication: Prophylaxis
     Dosage: 6 MG/0.6 ML
     Route: 058
     Dates: start: 20240404, end: 20240404
  6. UDENYCA [Suspect]
     Active Substance: PEGFILGRASTIM-CBQV
     Indication: Prophylaxis
     Dosage: 6 MG/0.6 ML
     Route: 058
     Dates: start: 20240425

REACTIONS (3)
  - Device malfunction [Unknown]
  - Device malfunction [Unknown]
  - No adverse event [Unknown]

NARRATIVE: CASE EVENT DATE: 20240426
